FAERS Safety Report 6704162-2 (Version None)
Quarter: 2010Q2

REPORT INFORMATION
  Report Type: 
  Country: None (occurrence: None)
  Receive Date: 20100430
  Receipt Date: 20100419
  Transmission Date: 20101027
  Serious: Yes (Death)
  Sender: FDA-Public Use
  Company Number: US-GENENTECH-300878

PATIENT

DRUGS (16)
  1. RITUXIMAB [Suspect]
     Indication: MANTLE CELL LYMPHOMA
     Dosage: 375 MG/M2, UNK
     Route: 042
  2. SULFAMETHOXAZOLE AND TRIMETHOPRIM [Suspect]
     Indication: PROPHYLAXIS
     Dosage: UNK
     Route: 048
  3. FILGRASTIM [Suspect]
     Indication: MANTLE CELL LYMPHOMA
     Dosage: UNK
     Route: 058
  4. METHOTREXATE [Suspect]
     Indication: MANTLE CELL LYMPHOMA
     Dosage: 300 MG/M2, UNK
     Route: 042
  5. LEUCOVORIN CALCIUM [Suspect]
     Indication: MANTLE CELL LYMPHOMA
     Dosage: 50 MG/M2, UNK
     Route: 042
  6. LEUCOVORIN CALCIUM [Suspect]
     Dosage: 100 MG/M2, UNK
     Route: 042
  7. CYCLOPHOSPHAMIDE [Suspect]
     Indication: MANTLE CELL LYMPHOMA
     Dosage: UNK
     Route: 042
  8. DOXORUBICIN HCL [Suspect]
     Indication: MANTLE CELL LYMPHOMA
     Dosage: 50 MG/M2, UNK
     Route: 042
  9. VINCRISTINE [Suspect]
     Indication: MANTLE CELL LYMPHOMA
     Dosage: 1.4 MG/M2, UNK
     Route: 042
  10. PREDNISONE [Suspect]
     Indication: MANTLE CELL LYMPHOMA
     Dosage: UNK
     Route: 048
  11. LEVOFLOXACIN [Suspect]
     Indication: MANTLE CELL LYMPHOMA
     Dosage: UNK
     Route: 048
  12. FLUCONAZOLE [Suspect]
     Indication: MANTLE CELL LYMPHOMA
     Dosage: UNK
     Route: 048
  13. ETOPOSIDE [Suspect]
     Indication: MANTLE CELL LYMPHOMA
     Dosage: UNK
     Route: 042
  14. CYTARABINE [Suspect]
     Indication: MANTLE CELL LYMPHOMA
     Dosage: 2000 MG/M2, UNK
     Route: 042
  15. ACYCLOVIR [Suspect]
     Indication: ANTIVIRAL PROPHYLAXIS
     Dosage: 200 MG, UNK
     Route: 048
  16. CARMUSTINE [Suspect]
     Indication: MANTLE CELL LYMPHOMA
     Dosage: 15 MG/KG, UNK
     Route: 042

REACTIONS (14)
  - ANAEMIA [None]
  - CARDIOTOXICITY [None]
  - CIRCULATORY COLLAPSE [None]
  - FEBRILE NEUTROPENIA [None]
  - GASTROINTESTINAL TOXICITY [None]
  - HAEMATOTOXICITY [None]
  - HEPATOTOXICITY [None]
  - INFECTION [None]
  - NEPHROPATHY TOXIC [None]
  - NEUROTOXICITY [None]
  - PULMONARY TOXICITY [None]
  - RENAL FAILURE ACUTE [None]
  - SEPSIS [None]
  - SKIN TOXICITY [None]
